FAERS Safety Report 10180330 (Version 2)
Quarter: 2014Q2

REPORT INFORMATION
  Report Type: Spontaneous
  Country: US (occurrence: US)
  Receive Date: 20140519
  Receipt Date: 20140519
  Transmission Date: 20141212
  Serious: No
  Sender: FDA-Public Use
  Company Number: US-AMGEN INC.-USASP2013075315

PATIENT
  Age: 69 Year
  Sex: Female
  Weight: 53.06 kg

DRUGS (2)
  1. PROLIA [Suspect]
     Indication: OSTEOPOROSIS POSTMENOPAUSAL
     Dosage: 60 MG, Q6MO
     Route: 058
     Dates: start: 20131007
  2. INFLUENZA VACCINE [Concomitant]
     Dosage: UNK
     Dates: start: 20131007

REACTIONS (1)
  - Inappropriate schedule of drug administration [Unknown]
